FAERS Safety Report 23331797 (Version 2)
Quarter: 2023Q4

REPORT INFORMATION
  Report Type: Spontaneous
  Country: FR (occurrence: FR)
  Receive Date: 20231222
  Receipt Date: 20231227
  Transmission Date: 20240110
  Serious: Yes (Hospitalization, Other)
  Sender: FDA-Public Use
  Company Number: None

PATIENT
  Age: 76 Year
  Sex: Female

DRUGS (5)
  1. DOXORUBICIN HYDROCHLORIDE [Suspect]
     Active Substance: DOXORUBICIN HYDROCHLORIDE
     Indication: Ovarian cancer
     Dosage: 25 MG/KG, 1 X CYCLICAL
     Route: 042
     Dates: start: 20230626, end: 20231019
  2. ERYTHROPOIETIN [Suspect]
     Active Substance: ERYTHROPOIETIN
     Indication: Anaemia
     Dosage: 1 DOSAGE FORM, EVERY 1 WEEK, 30000 IU/1 ML, SOLUTION FOR INJECTION IN A PRE-FILLED SYRINGE, MAMMAL/H
     Route: 058
     Dates: start: 20230821
  3. CARBOPLATIN [Suspect]
     Active Substance: CARBOPLATIN
     Indication: Ovarian cancer
     Dosage: 340 MG, EVERY 28 DAYS
     Route: 042
     Dates: start: 20230626, end: 20231019
  4. AVASTIN [Suspect]
     Active Substance: BEVACIZUMAB
     Indication: Ovarian cancer
     Dosage: 5 MG/KG, EVERY 14 DAYS, CONCENTRATE FOR SOLUTION FOR INFUSION, MAMMAL/HAMSTER/CHO CELLS
     Route: 042
     Dates: start: 20230626, end: 20231122
  5. PEGFILGRASTIM [Suspect]
     Active Substance: PEGFILGRASTIM
     Indication: Neutropenia
     Dosage: UNK, SOLUTION FOR INJECTION IN A PRE-FILLED SYRINGE, (BACTERIUM/ESCHERICHIA COLI)
     Route: 058
     Dates: start: 20230627

REACTIONS (1)
  - Ischaemic stroke [Recovering/Resolving]

NARRATIVE: CASE EVENT DATE: 20231130
